FAERS Safety Report 6131226-7 (Version None)
Quarter: 2009Q1

REPORT INFORMATION
  Report Type: 
  Country: None (occurrence: None)
  Receive Date: 20090325
  Receipt Date: 20080506
  Transmission Date: 20090719
  Serious: Yes (Hospitalization)
  Sender: FDA-Public Use
  Company Number: US-BRISTOL-MYERS SQUIBB COMPANY-13933866

PATIENT
  Age: 70 Year

DRUGS (2)
  1. ERBITUX [Suspect]
     Indication: COLORECTAL CANCER
     Dosage: SCHEDULED TO BE GIVEN WEEKLY.
     Route: 042
     Dates: start: 20070801
  2. BENADRYL [Concomitant]
     Indication: PREMEDICATION

REACTIONS (2)
  - LOSS OF CONSCIOUSNESS [None]
  - STRIDOR [None]
